FAERS Safety Report 5384494-3 (Version None)
Quarter: 2007Q3

REPORT INFORMATION
  Report Type: 
  Country: None (occurrence: None)
  Receive Date: 20070711
  Receipt Date: 20070629
  Transmission Date: 20080115
  Serious: Yes (Hospitalization, Other)
  Sender: FDA-Public Use
  Company Number: SE-PFIZER INC-2007046423

PATIENT
  Sex: Female

DRUGS (1)
  1. CHAMPIX [Suspect]
     Indication: SMOKING CESSATION THERAPY
     Route: 048
     Dates: start: 20070202, end: 20070503

REACTIONS (5)
  - JOINT SWELLING [None]
  - LOCALISED OEDEMA [None]
  - NIGHTMARE [None]
  - OEDEMA PERIPHERAL [None]
  - UNEVALUABLE EVENT [None]
